FAERS Safety Report 9201342 (Version 1)
Quarter: 2013Q2

REPORT INFORMATION
  Report Type: Spontaneous
  Country: MX (occurrence: MX)
  Receive Date: 20130401
  Receipt Date: 20130401
  Transmission Date: 20140414
  Serious: Yes (Other)
  Sender: FDA-Public Use
  Company Number: PHHY2013MX031148

PATIENT
  Age: 74 Year
  Sex: Female

DRUGS (2)
  1. RASILEZ [Suspect]
     Indication: DIABETES MELLITUS
     Dosage: 1 DF (300 MG), DAILY
     Route: 048
     Dates: start: 201207
  2. RASILEZ [Suspect]
     Indication: OFF LABEL USE

REACTIONS (1)
  - Renal disorder [Not Recovered/Not Resolved]
